FAERS Safety Report 17307876 (Version 1)
Quarter: 2020Q1

REPORT INFORMATION
  Report Type: Spontaneous
  Country: US (occurrence: US)
  Receive Date: 20200122
  Receipt Date: 20200122
  Transmission Date: 20200409
  Serious: Yes (Other)
  Sender: FDA-Public Use
  Company Number: None

PATIENT
  Age: 70 Year
  Sex: Female
  Weight: 72 kg

DRUGS (12)
  1. LOSARTAN. [Concomitant]
     Active Substance: LOSARTAN
  2. ASPIRIN. [Concomitant]
     Active Substance: ASPIRIN
  3. MUSCLE RELAXANTS [Concomitant]
     Active Substance: UNSPECIFIED INGREDIENT
  4. ATORVASTATIN [Concomitant]
     Active Substance: ATORVASTATIN
  5. PRASUGREL. [Concomitant]
     Active Substance: PRASUGREL
  6. METOPROLOL TARTRATE. [Concomitant]
     Active Substance: METOPROLOL TARTRATE
  7. ENZYMES [Concomitant]
  8. BLACK SEED OPTIMA [Concomitant]
  9. OMEGA 3 FISH OIL [Concomitant]
     Active Substance: FISH OIL\OMEGA-3 FATTY ACIDS
  10. CITRACAL [Concomitant]
     Active Substance: CALCIUM CITRATE
  11. MAXI-VISION [Concomitant]
  12. EZETIMIBE 10MG [Suspect]
     Active Substance: EZETIMIBE
     Indication: BLOOD CHOLESTEROL INCREASED
     Route: 048
     Dates: start: 20200109, end: 20200112

REACTIONS (23)
  - Decreased appetite [None]
  - Tenderness [None]
  - Headache [None]
  - Haemorrhage [None]
  - Hot flush [None]
  - Drug hypersensitivity [None]
  - Pain [None]
  - Chills [None]
  - Fatigue [None]
  - Eye contusion [None]
  - Nasal congestion [None]
  - Eye swelling [None]
  - Hypersensitivity [None]
  - Contusion [None]
  - Blister [None]
  - Myalgia [None]
  - Diarrhoea [None]
  - Disorientation [None]
  - Cough [None]
  - Eye haemorrhage [None]
  - Back pain [None]
  - Breast pain [None]
  - Dry eye [None]

NARRATIVE: CASE EVENT DATE: 20200112
